FAERS Safety Report 6084105-8 (Version None)
Quarter: 2009Q1

REPORT INFORMATION
  Report Type: 
  Country: None (occurrence: None)
  Receive Date: 20090204
  Receipt Date: 20080810
  Transmission Date: 20090719
  Serious: Yes (Other)
  Sender: FDA-Public Use
  Company Number: 278349

PATIENT
  Age: 68 Year
  Sex: Male

DRUGS (2)
  1. NOVOLOG [Suspect]
     Indication: TYPE 1 DIABETES MELLITUS
     Dosage: SUBCUTANEOUS
     Route: 058
  2. LANTUS [Concomitant]

REACTIONS (3)
  - BLOOD GLUCOSE INCREASED [None]
  - DEVICE MALFUNCTION [None]
  - HYPOGLYCAEMIC UNCONSCIOUSNESS [None]
